FAERS Safety Report 21691171 (Version 1)
Quarter: 2022Q4

REPORT INFORMATION
  Report Type: Spontaneous
  Country: US (occurrence: US)
  Receive Date: 20221207
  Receipt Date: 20221207
  Transmission Date: 20230113
  Serious: No
  Sender: FDA-Public Use
  Company Number: US-JNJFOC-20221204318

PATIENT
  Age: 8 Decade
  Sex: Male
  Weight: 102.15 kg

DRUGS (2)
  1. XARELTO [Suspect]
     Active Substance: RIVAROXABAN
     Indication: Atrial fibrillation
     Route: 048
  2. XARELTO [Suspect]
     Active Substance: RIVAROXABAN
     Indication: Cerebrovascular accident prophylaxis

REACTIONS (8)
  - Memory impairment [Unknown]
  - Inappropriate schedule of product administration [Unknown]
  - Heart rate increased [Unknown]
  - Hyperhidrosis [Unknown]
  - Upper-airway cough syndrome [Unknown]
  - Blood pressure decreased [Unknown]
  - Weight decreased [Unknown]
  - Renal disorder [Unknown]

NARRATIVE: CASE EVENT DATE: 20210101
